FAERS Safety Report 20032307 (Version 1)
Quarter: 2021Q4

REPORT INFORMATION
  Report Type: Spontaneous
  Country: US (occurrence: US)
  Receive Date: 20211103
  Receipt Date: 20211103
  Transmission Date: 20220304
  Serious: No
  Sender: FDA-Public Use
  Company Number: US-ALLERGAN-2120795US

PATIENT
  Age: 24 Year
  Sex: Female

DRUGS (5)
  1. VRAYLAR [Suspect]
     Active Substance: CARIPRAZINE
     Indication: Bipolar I disorder
     Dosage: 1.5 MG EVERY 3 DAYS
     Route: 048
     Dates: start: 20210524
  2. VRAYLAR [Suspect]
     Active Substance: CARIPRAZINE
     Dosage: 1.5 MG, QD
     Route: 048
     Dates: start: 20210510
  3. LAMICTAL [Concomitant]
     Active Substance: LAMOTRIGINE
  4. KLONOPIN [Concomitant]
     Active Substance: CLONAZEPAM
  5. ELAGOLIX SODIUM [Concomitant]
     Active Substance: ELAGOLIX SODIUM

REACTIONS (2)
  - Photophobia [Not Recovered/Not Resolved]
  - Vision blurred [Not Recovered/Not Resolved]

NARRATIVE: CASE EVENT DATE: 20210513
